FAERS Safety Report 9735004 (Version 1)
Quarter: 2013Q4

REPORT INFORMATION
  Report Type: Spontaneous
  Country: CA (occurrence: CA)
  Receive Date: 20131206
  Receipt Date: 20131206
  Transmission Date: 20140711
  Serious: Yes (Hospitalization, Other)
  Sender: FDA-Public Use
  Company Number: CA-TARO PHARMACEUTICALS U.S.A., INC-2013SUN05088

PATIENT
  Age: 72 Year
  Sex: Female

DRUGS (5)
  1. TARO-WARFARIN TABLETS 1MG [Suspect]
     Indication: ATRIAL FIBRILLATION
     Dosage: 5MG AND 1MG TABLETS AT 8 MG QD
     Route: 048
     Dates: start: 20131119, end: 20131120
  2. MYLAN-WARFARIN TABLETS 5MG [Suspect]
     Indication: ATRIAL FIBRILLATION
     Dosage: 5MG AND 1MG TABLETS AT 8 MG QD
     Route: 048
     Dates: end: 20131120
  3. MACROBID [Concomitant]
     Dosage: UNK
     Dates: start: 20131120
  4. LIPITOR [Concomitant]
     Dosage: 40 MG, QD
  5. AMLODIPINE [Concomitant]
     Dosage: 5 MG, QD
     Dates: start: 201308

REACTIONS (2)
  - Product substitution issue [None]
  - International normalised ratio increased [Unknown]
